FAERS Safety Report 18742013 (Version 18)
Quarter: 2025Q3

REPORT INFORMATION
  Report Type: Spontaneous
  Country: CA (occurrence: CA)
  Receive Date: 20210114
  Receipt Date: 20250930
  Transmission Date: 20251021
  Serious: Yes (Hospitalization, Disabling, Congenital Anomaly, Other)
  Sender: SANOFI AVENTIS
  Company Number: CA-SA-SAC20210112000027

PATIENT
  Age: 80 Year
  Sex: Male
  Weight: 89 kg

DRUGS (341)
  1. TAMSULOSIN HYDROCHLORIDE [Suspect]
     Active Substance: TAMSULOSIN HYDROCHLORIDE
     Route: 065
  2. INFLUENZA VIRUS VACCINE [Suspect]
     Active Substance: INFLUENZA VIRUS VACCINE
     Indication: Immunisation
     Route: 051
  3. INFLUENZA VIRUS VACCINE [Suspect]
     Active Substance: INFLUENZA VIRUS VACCINE
     Indication: Prophylaxis
  4. INFLUENZA VIRUS VACCINE [Suspect]
     Active Substance: INFLUENZA VIRUS VACCINE
     Indication: Immunisation
  5. INFLUENZA VIRUS VACCINE [Suspect]
     Active Substance: INFLUENZA VIRUS VACCINE
     Route: 065
  6. INFLUENZA VIRUS VACCINE [Suspect]
     Active Substance: INFLUENZA VIRUS VACCINE
  7. INFLUENZA VIRUS VACCINE [Suspect]
     Active Substance: INFLUENZA VIRUS VACCINE
     Route: 065
  8. INFLUENZA VIRUS VACCINE [Suspect]
     Active Substance: INFLUENZA VIRUS VACCINE
  9. INFLUENZA VIRUS VACCINE [Suspect]
     Active Substance: INFLUENZA VIRUS VACCINE
     Route: 065
  10. INFLUENZA VIRUS VACCINE [Suspect]
     Active Substance: INFLUENZA VIRUS VACCINE
  11. INFLUENZA VIRUS VACCINE [Suspect]
     Active Substance: INFLUENZA VIRUS VACCINE
  12. INFLUENZA VIRUS VACCINE [Suspect]
     Active Substance: INFLUENZA VIRUS VACCINE
     Route: 051
  13. INFLUENZA VIRUS VACCINE [Suspect]
     Active Substance: INFLUENZA VIRUS VACCINE
  14. PNEUMOCOCCAL VACCINE NOS [Suspect]
     Active Substance: PNEUMOCOCCAL VACCINE
     Indication: Immunisation
  15. PNEUMOCOCCAL VACCINE NOS [Suspect]
     Active Substance: PNEUMOCOCCAL VACCINE
     Indication: Prophylaxis
  16. PNEUMOCOCCAL VACCINE NOS [Suspect]
     Active Substance: PNEUMOCOCCAL VACCINE
     Indication: Immunisation
  17. PNEUMOCOCCAL VACCINE NOS [Suspect]
     Active Substance: PNEUMOCOCCAL VACCINE
  18. PNEUMOCOCCAL VACCINE NOS [Suspect]
     Active Substance: PNEUMOCOCCAL VACCINE
     Route: 065
  19. PNEUMOCOCCAL VACCINE NOS [Suspect]
     Active Substance: PNEUMOCOCCAL VACCINE
     Route: 065
  20. PNEUMOCOCCAL VACCINE NOS [Suspect]
     Active Substance: PNEUMOCOCCAL VACCINE
  21. PNEUMOCOCCAL VACCINE NOS [Suspect]
     Active Substance: PNEUMOCOCCAL VACCINE
     Route: 065
  22. PNEUMOCOCCAL VACCINE NOS [Suspect]
     Active Substance: PNEUMOCOCCAL VACCINE
  23. PNEUMOCOCCAL VACCINE NOS [Suspect]
     Active Substance: PNEUMOCOCCAL VACCINE
  24. PNEUMOCOCCAL VACCINE NOS [Suspect]
     Active Substance: PNEUMOCOCCAL VACCINE
  25. PNEUMOCOCCAL VACCINE NOS [Suspect]
     Active Substance: PNEUMOCOCCAL VACCINE
  26. LEVOFLOXACIN [Suspect]
     Active Substance: LEVOFLOXACIN
     Indication: Product used for unknown indication
  27. LEVOFLOXACIN [Suspect]
     Active Substance: LEVOFLOXACIN
     Indication: Prophylaxis
  28. LEVOFLOXACIN [Suspect]
     Active Substance: LEVOFLOXACIN
  29. LEVOFLOXACIN [Suspect]
     Active Substance: LEVOFLOXACIN
  30. LEVOFLOXACIN [Suspect]
     Active Substance: LEVOFLOXACIN
     Route: 065
  31. LEVOFLOXACIN [Suspect]
     Active Substance: LEVOFLOXACIN
     Route: 065
  32. LEVOFLOXACIN [Suspect]
     Active Substance: LEVOFLOXACIN
  33. LEVOFLOXACIN [Suspect]
     Active Substance: LEVOFLOXACIN
  34. LEVOFLOXACIN [Suspect]
     Active Substance: LEVOFLOXACIN
  35. LEVOFLOXACIN [Suspect]
     Active Substance: LEVOFLOXACIN
     Route: 065
  36. LEVOFLOXACIN [Suspect]
     Active Substance: LEVOFLOXACIN
  37. LEVOFLOXACIN [Suspect]
     Active Substance: LEVOFLOXACIN
  38. LEVOFLOXACIN [Suspect]
     Active Substance: LEVOFLOXACIN
  39. LEVOFLOXACIN [Suspect]
     Active Substance: LEVOFLOXACIN
  40. LEVOFLOXACIN [Suspect]
     Active Substance: LEVOFLOXACIN
     Route: 065
  41. LEVOFLOXACIN [Suspect]
     Active Substance: LEVOFLOXACIN
  42. LEVOFLOXACIN [Suspect]
     Active Substance: LEVOFLOXACIN
  43. LEVOFLOXACIN [Suspect]
     Active Substance: LEVOFLOXACIN
  44. LEVOFLOXACIN [Suspect]
     Active Substance: LEVOFLOXACIN
  45. LEVOFLOXACIN [Suspect]
     Active Substance: LEVOFLOXACIN
  46. LEVOFLOXACIN [Suspect]
     Active Substance: LEVOFLOXACIN
  47. ASPIRIN [Suspect]
     Active Substance: ASPIRIN
     Indication: Product used for unknown indication
  48. BUDESONIDE [Suspect]
     Active Substance: BUDESONIDE
     Indication: Asthma
     Dosage: 2 DF, QD
     Route: 065
  49. BUDESONIDE [Suspect]
     Active Substance: BUDESONIDE
     Dosage: 4 DF, QD
     Route: 065
  50. BUDESONIDE [Suspect]
     Active Substance: BUDESONIDE
     Dosage: 1 DF, QD
  51. BUDESONIDE [Suspect]
     Active Substance: BUDESONIDE
     Dosage: 2 DF, Q12H
     Route: 065
  52. BUDESONIDE [Suspect]
     Active Substance: BUDESONIDE
  53. BUDESONIDE [Suspect]
     Active Substance: BUDESONIDE
     Route: 055
  54. BUDESONIDE [Suspect]
     Active Substance: BUDESONIDE
  55. BUDESONIDE [Suspect]
     Active Substance: BUDESONIDE
  56. ACETYLCYSTEINE [Suspect]
     Active Substance: ACETYLCYSTEINE
     Indication: Product used for unknown indication
     Route: 055
  57. ACETYLCYSTEINE [Suspect]
     Active Substance: ACETYLCYSTEINE
     Indication: Product used for unknown indication
     Route: 065
  58. ACETYLCYSTEINE [Suspect]
     Active Substance: ACETYLCYSTEINE
     Route: 065
  59. ACETYLCYSTEINE [Suspect]
     Active Substance: ACETYLCYSTEINE
     Route: 065
  60. ACETYLCYSTEINE [Suspect]
     Active Substance: ACETYLCYSTEINE
     Route: 065
  61. ACETYLCYSTEINE [Suspect]
     Active Substance: ACETYLCYSTEINE
     Route: 065
  62. ACETYLCYSTEINE [Suspect]
     Active Substance: ACETYLCYSTEINE
  63. ACETYLCYSTEINE [Suspect]
     Active Substance: ACETYLCYSTEINE
  64. ACETYLCYSTEINE [Suspect]
     Active Substance: ACETYLCYSTEINE
  65. ACETYLCYSTEINE [Suspect]
     Active Substance: ACETYLCYSTEINE
  66. ACETYLCYSTEINE [Suspect]
     Active Substance: ACETYLCYSTEINE
  67. ACETYLCYSTEINE [Suspect]
     Active Substance: ACETYLCYSTEINE
  68. ACETYLCYSTEINE [Suspect]
     Active Substance: ACETYLCYSTEINE
     Route: 065
  69. ACETYLCYSTEINE [Suspect]
     Active Substance: ACETYLCYSTEINE
     Route: 065
  70. ACETYLCYSTEINE [Suspect]
     Active Substance: ACETYLCYSTEINE
     Route: 055
  71. ACETYLCYSTEINE [Suspect]
     Active Substance: ACETYLCYSTEINE
  72. ACETYLCYSTEINE [Suspect]
     Active Substance: ACETYLCYSTEINE
  73. ACETYLCYSTEINE [Suspect]
     Active Substance: ACETYLCYSTEINE
  74. ACETYLCYSTEINE [Suspect]
     Active Substance: ACETYLCYSTEINE
     Route: 065
  75. ACETYLCYSTEINE [Suspect]
     Active Substance: ACETYLCYSTEINE
  76. ACETYLCYSTEINE [Suspect]
     Active Substance: ACETYLCYSTEINE
  77. ACETYLCYSTEINE [Suspect]
     Active Substance: ACETYLCYSTEINE
  78. ACETYLCYSTEINE [Suspect]
     Active Substance: ACETYLCYSTEINE
     Route: 055
  79. ACETYLCYSTEINE [Suspect]
     Active Substance: ACETYLCYSTEINE
  80. MESALAMINE [Suspect]
     Active Substance: MESALAMINE
     Indication: Product used for unknown indication
     Route: 065
  81. MESALAMINE [Suspect]
     Active Substance: MESALAMINE
     Route: 065
  82. MESALAMINE [Suspect]
     Active Substance: MESALAMINE
  83. MESALAMINE [Suspect]
     Active Substance: MESALAMINE
  84. MESALAMINE [Suspect]
     Active Substance: MESALAMINE
     Route: 065
  85. MESALAMINE [Suspect]
     Active Substance: MESALAMINE
     Route: 065
  86. MESALAMINE [Suspect]
     Active Substance: MESALAMINE
  87. MESALAMINE [Suspect]
     Active Substance: MESALAMINE
  88. AMLODIPINE BESYLATE [Suspect]
     Active Substance: AMLODIPINE BESYLATE
     Indication: Product used for unknown indication
  89. AMLODIPINE BESYLATE [Suspect]
     Active Substance: AMLODIPINE BESYLATE
     Indication: Product used for unknown indication
  90. AMLODIPINE BESYLATE [Suspect]
     Active Substance: AMLODIPINE BESYLATE
     Route: 065
  91. AMLODIPINE BESYLATE [Suspect]
     Active Substance: AMLODIPINE BESYLATE
     Route: 065
  92. AMLODIPINE BESYLATE [Suspect]
     Active Substance: AMLODIPINE BESYLATE
     Route: 065
  93. AMLODIPINE BESYLATE [Suspect]
     Active Substance: AMLODIPINE BESYLATE
  94. AMLODIPINE BESYLATE [Suspect]
     Active Substance: AMLODIPINE BESYLATE
  95. ASACOL [Suspect]
     Active Substance: MESALAMINE
     Indication: Product used for unknown indication
  96. ASACOL [Suspect]
     Active Substance: MESALAMINE
     Indication: Product used for unknown indication
     Route: 065
  97. ASACOL [Suspect]
     Active Substance: MESALAMINE
  98. ASACOL [Suspect]
     Active Substance: MESALAMINE
  99. ASACOL [Suspect]
     Active Substance: MESALAMINE
  100. ASACOL [Suspect]
     Active Substance: MESALAMINE
  101. ASACOL [Suspect]
     Active Substance: MESALAMINE
  102. ASACOL [Suspect]
     Active Substance: MESALAMINE
     Route: 065
  103. ASACOL [Suspect]
     Active Substance: MESALAMINE
     Route: 065
  104. ASACOL [Suspect]
     Active Substance: MESALAMINE
  105. ASACOL [Suspect]
     Active Substance: MESALAMINE
     Route: 065
  106. ASACOL [Suspect]
     Active Substance: MESALAMINE
  107. ASACOL [Suspect]
     Active Substance: MESALAMINE
  108. ASACOL [Suspect]
     Active Substance: MESALAMINE
  109. ASACOL [Suspect]
     Active Substance: MESALAMINE
  110. AZITHROMYCIN [Suspect]
     Active Substance: AZITHROMYCIN
     Indication: Product used for unknown indication
  111. AZITHROMYCIN [Suspect]
     Active Substance: AZITHROMYCIN
  112. AZITHROMYCIN [Suspect]
     Active Substance: AZITHROMYCIN
  113. AZITHROMYCIN [Suspect]
     Active Substance: AZITHROMYCIN
  114. AZITHROMYCIN [Suspect]
     Active Substance: AZITHROMYCIN
  115. AZITHROMYCIN [Suspect]
     Active Substance: AZITHROMYCIN
  116. AZITHROMYCIN [Suspect]
     Active Substance: AZITHROMYCIN
  117. AZITHROMYCIN [Suspect]
     Active Substance: AZITHROMYCIN
  118. AZITHROMYCIN [Suspect]
     Active Substance: AZITHROMYCIN
  119. AZITHROMYCIN [Suspect]
     Active Substance: AZITHROMYCIN
     Route: 065
  120. AZITHROMYCIN [Suspect]
     Active Substance: AZITHROMYCIN
  121. AZITHROMYCIN [Suspect]
     Active Substance: AZITHROMYCIN
  122. AZITHROMYCIN [Suspect]
     Active Substance: AZITHROMYCIN
     Route: 065
  123. AZITHROMYCIN [Suspect]
     Active Substance: AZITHROMYCIN
  124. AZITHROMYCIN [Suspect]
     Active Substance: AZITHROMYCIN
  125. AZITHROMYCIN [Suspect]
     Active Substance: AZITHROMYCIN
  126. AZITHROMYCIN [Suspect]
     Active Substance: AZITHROMYCIN
     Route: 065
  127. AZITHROMYCIN [Suspect]
     Active Substance: AZITHROMYCIN
  128. AZITHROMYCIN [Suspect]
     Active Substance: AZITHROMYCIN
  129. AZITHROMYCIN [Suspect]
     Active Substance: AZITHROMYCIN
  130. AZITHROMYCIN [Suspect]
     Active Substance: AZITHROMYCIN
  131. AZITHROMYCIN [Suspect]
     Active Substance: AZITHROMYCIN
  132. BUDESONIDE\FORMOTEROL FUMARATE [Suspect]
     Active Substance: BUDESONIDE\FORMOTEROL FUMARATE
     Indication: Asthma
     Dosage: 2 DF, BID
  133. BUDESONIDE\FORMOTEROL FUMARATE [Suspect]
     Active Substance: BUDESONIDE\FORMOTEROL FUMARATE
     Dosage: 1 DF, QD
     Route: 055
  134. BUDESONIDE\FORMOTEROL FUMARATE [Suspect]
     Active Substance: BUDESONIDE\FORMOTEROL FUMARATE
     Dosage: 2 DF, QD
  135. BUDESONIDE\FORMOTEROL FUMARATE [Suspect]
     Active Substance: BUDESONIDE\FORMOTEROL FUMARATE
  136. BUDESONIDE\FORMOTEROL FUMARATE [Suspect]
     Active Substance: BUDESONIDE\FORMOTEROL FUMARATE
     Route: 055
  137. CICLESONIDE [Suspect]
     Active Substance: CICLESONIDE
     Indication: Product used for unknown indication
     Route: 055
  138. DOXYCYCLINE [Suspect]
     Active Substance: DOXYCYCLINE
     Indication: Product used for unknown indication
  139. DOXYCYCLINE [Suspect]
     Active Substance: DOXYCYCLINE
  140. DOXYCYCLINE [Suspect]
     Active Substance: DOXYCYCLINE
  141. DOXYCYCLINE [Suspect]
     Active Substance: DOXYCYCLINE
  142. DOXYCYCLINE [Suspect]
     Active Substance: DOXYCYCLINE
  143. DOXYCYCLINE [Suspect]
     Active Substance: DOXYCYCLINE
  144. DOXYCYCLINE [Suspect]
     Active Substance: DOXYCYCLINE
  145. DOXYCYCLINE [Suspect]
     Active Substance: DOXYCYCLINE
     Route: 065
  146. DOXYCYCLINE [Suspect]
     Active Substance: DOXYCYCLINE
     Route: 065
  147. DOXYCYCLINE [Suspect]
     Active Substance: DOXYCYCLINE
  148. DOXYCYCLINE [Suspect]
     Active Substance: DOXYCYCLINE
  149. DOXYCYCLINE [Suspect]
     Active Substance: DOXYCYCLINE
     Route: 065
  150. DOXYCYCLINE [Suspect]
     Active Substance: DOXYCYCLINE
  151. DOXYCYCLINE [Suspect]
     Active Substance: DOXYCYCLINE
  152. DOXYCYCLINE [Suspect]
     Active Substance: DOXYCYCLINE
  153. DOXYCYCLINE [Suspect]
     Active Substance: DOXYCYCLINE
  154. MELATONIN [Suspect]
     Active Substance: MELATONIN
     Indication: Product used for unknown indication
  155. MELATONIN [Suspect]
     Active Substance: MELATONIN
  156. MELATONIN [Suspect]
     Active Substance: MELATONIN
  157. MELATONIN [Suspect]
     Active Substance: MELATONIN
  158. MELATONIN [Suspect]
     Active Substance: MELATONIN
  159. MELATONIN [Suspect]
     Active Substance: MELATONIN
  160. MELATONIN [Suspect]
     Active Substance: MELATONIN
  161. MELATONIN [Suspect]
     Active Substance: MELATONIN
  162. MELATONIN [Suspect]
     Active Substance: MELATONIN
  163. MELATONIN [Suspect]
     Active Substance: MELATONIN
     Route: 065
  164. MELATONIN [Suspect]
     Active Substance: MELATONIN
  165. MELATONIN [Suspect]
     Active Substance: MELATONIN
     Route: 065
  166. MELATONIN [Suspect]
     Active Substance: MELATONIN
  167. MELATONIN [Suspect]
     Active Substance: MELATONIN
  168. MELATONIN [Suspect]
     Active Substance: MELATONIN
     Route: 065
  169. MELATONIN [Suspect]
     Active Substance: MELATONIN
  170. MELATONIN [Suspect]
     Active Substance: MELATONIN
  171. MELATONIN [Suspect]
     Active Substance: MELATONIN
  172. MELATONIN [Suspect]
     Active Substance: MELATONIN
  173. NAPROXEN [Suspect]
     Active Substance: NAPROXEN
     Indication: Product used for unknown indication
  174. NAPROXEN [Suspect]
     Active Substance: NAPROXEN
  175. NAPROXEN [Suspect]
     Active Substance: NAPROXEN
     Route: 065
  176. NAPROXEN [Suspect]
     Active Substance: NAPROXEN
  177. NAPROXEN [Suspect]
     Active Substance: NAPROXEN
  178. NAPROXEN [Suspect]
     Active Substance: NAPROXEN
  179. NAPROXEN [Suspect]
     Active Substance: NAPROXEN
  180. NAPROXEN [Suspect]
     Active Substance: NAPROXEN
  181. NAPROXEN [Suspect]
     Active Substance: NAPROXEN
  182. NAPROXEN [Suspect]
     Active Substance: NAPROXEN
  183. NAPROXEN [Suspect]
     Active Substance: NAPROXEN
  184. NAPROXEN [Suspect]
     Active Substance: NAPROXEN
  185. NAPROXEN [Suspect]
     Active Substance: NAPROXEN
     Route: 065
  186. NAPROXEN [Suspect]
     Active Substance: NAPROXEN
  187. NAPROXEN [Suspect]
     Active Substance: NAPROXEN
     Route: 065
  188. NAPROXEN [Suspect]
     Active Substance: NAPROXEN
  189. NAPROXEN [Suspect]
     Active Substance: NAPROXEN
  190. NAPROXEN [Suspect]
     Active Substance: NAPROXEN
     Route: 065
  191. NAPROXEN [Suspect]
     Active Substance: NAPROXEN
  192. NAPROXEN [Suspect]
     Active Substance: NAPROXEN
  193. NAPROXEN [Suspect]
     Active Substance: NAPROXEN
  194. NAPROXEN [Suspect]
     Active Substance: NAPROXEN
  195. NAPROXEN SODIUM [Suspect]
     Active Substance: NAPROXEN SODIUM
     Indication: Product used for unknown indication
  196. NAPROXEN SODIUM [Suspect]
     Active Substance: NAPROXEN SODIUM
  197. NAPROXEN SODIUM [Suspect]
     Active Substance: NAPROXEN SODIUM
     Route: 065
  198. NAPROXEN SODIUM [Suspect]
     Active Substance: NAPROXEN SODIUM
  199. NAPROXEN SODIUM [Suspect]
     Active Substance: NAPROXEN SODIUM
     Route: 065
  200. NAPROXEN SODIUM [Suspect]
     Active Substance: NAPROXEN SODIUM
  201. NAPROXEN SODIUM [Suspect]
     Active Substance: NAPROXEN SODIUM
  202. PREGABALIN [Suspect]
     Active Substance: PREGABALIN
     Indication: Product used for unknown indication
  203. PREGABALIN [Suspect]
     Active Substance: PREGABALIN
  204. PREGABALIN [Suspect]
     Active Substance: PREGABALIN
  205. PREGABALIN [Suspect]
     Active Substance: PREGABALIN
  206. PREGABALIN [Suspect]
     Active Substance: PREGABALIN
  207. PREGABALIN [Suspect]
     Active Substance: PREGABALIN
     Route: 065
  208. PREGABALIN [Suspect]
     Active Substance: PREGABALIN
     Route: 065
  209. PREGABALIN [Suspect]
     Active Substance: PREGABALIN
  210. PREGABALIN [Suspect]
     Active Substance: PREGABALIN
     Route: 065
  211. PREGABALIN [Suspect]
     Active Substance: PREGABALIN
  212. PREGABALIN [Suspect]
     Active Substance: PREGABALIN
  213. PREGABALIN [Suspect]
     Active Substance: PREGABALIN
  214. PREGABALIN [Suspect]
     Active Substance: PREGABALIN
  215. PREDNISONE [Suspect]
     Active Substance: PREDNISONE
     Indication: Asthma
  216. PREDNISONE [Suspect]
     Active Substance: PREDNISONE
     Indication: Product used for unknown indication
  217. PREDNISONE [Suspect]
     Active Substance: PREDNISONE
  218. PREDNISONE [Suspect]
     Active Substance: PREDNISONE
  219. PREDNISONE [Suspect]
     Active Substance: PREDNISONE
  220. PREDNISONE [Suspect]
     Active Substance: PREDNISONE
  221. PREDNISONE [Suspect]
     Active Substance: PREDNISONE
  222. PREDNISONE [Suspect]
     Active Substance: PREDNISONE
     Route: 065
  223. PREDNISONE [Suspect]
     Active Substance: PREDNISONE
     Route: 065
  224. PREDNISONE [Suspect]
     Active Substance: PREDNISONE
  225. PREDNISONE [Suspect]
     Active Substance: PREDNISONE
     Route: 065
  226. PREDNISONE [Suspect]
     Active Substance: PREDNISONE
  227. PREDNISONE [Suspect]
     Active Substance: PREDNISONE
  228. PREDNISONE [Suspect]
     Active Substance: PREDNISONE
  229. PANTOPRAZOLE [Suspect]
     Active Substance: PANTOPRAZOLE
     Indication: Product used for unknown indication
  230. PANTOPRAZOLE [Suspect]
     Active Substance: PANTOPRAZOLE
     Indication: Product used for unknown indication
     Route: 065
  231. PANTOPRAZOLE [Suspect]
     Active Substance: PANTOPRAZOLE
  232. PANTOPRAZOLE [Suspect]
     Active Substance: PANTOPRAZOLE
  233. PANTOPRAZOLE [Suspect]
     Active Substance: PANTOPRAZOLE
  234. PANTOPRAZOLE [Suspect]
     Active Substance: PANTOPRAZOLE
     Route: 065
  235. PANTOPRAZOLE [Suspect]
     Active Substance: PANTOPRAZOLE
     Route: 065
  236. PANTOPRAZOLE [Suspect]
     Active Substance: PANTOPRAZOLE
  237. PANTOPRAZOLE [Suspect]
     Active Substance: PANTOPRAZOLE
     Route: 065
  238. PANTOPRAZOLE [Suspect]
     Active Substance: PANTOPRAZOLE
  239. PANTOPRAZOLE [Suspect]
     Active Substance: PANTOPRAZOLE
  240. PANTOPRAZOLE [Suspect]
     Active Substance: PANTOPRAZOLE
  241. PANTOPRAZOLE SODIUM [Suspect]
     Active Substance: PANTOPRAZOLE SODIUM
     Indication: Product used for unknown indication
  242. PANTOPRAZOLE SODIUM [Suspect]
     Active Substance: PANTOPRAZOLE SODIUM
  243. PANTOPRAZOLE SODIUM [Suspect]
     Active Substance: PANTOPRAZOLE SODIUM
     Route: 065
  244. PANTOPRAZOLE SODIUM [Suspect]
     Active Substance: PANTOPRAZOLE SODIUM
  245. PANTOPRAZOLE SODIUM [Suspect]
     Active Substance: PANTOPRAZOLE SODIUM
  246. RAMIPRIL [Suspect]
     Active Substance: RAMIPRIL
     Indication: Asthma
     Route: 048
  247. RAMIPRIL [Suspect]
     Active Substance: RAMIPRIL
     Indication: Prophylaxis
  248. RAMIPRIL [Suspect]
     Active Substance: RAMIPRIL
     Route: 065
  249. RAMIPRIL [Suspect]
     Active Substance: RAMIPRIL
     Route: 048
  250. RAMIPRIL [Suspect]
     Active Substance: RAMIPRIL
     Route: 048
  251. RAMIPRIL [Suspect]
     Active Substance: RAMIPRIL
     Route: 048
  252. RAMIPRIL [Suspect]
     Active Substance: RAMIPRIL
     Route: 048
  253. RAMIPRIL [Suspect]
     Active Substance: RAMIPRIL
     Route: 048
  254. RAMIPRIL [Suspect]
     Active Substance: RAMIPRIL
     Route: 048
  255. RAMIPRIL [Suspect]
     Active Substance: RAMIPRIL
     Route: 065
  256. RAMIPRIL [Suspect]
     Active Substance: RAMIPRIL
  257. RAMIPRIL [Suspect]
     Active Substance: RAMIPRIL
  258. RAMIPRIL [Suspect]
     Active Substance: RAMIPRIL
  259. RAMIPRIL [Suspect]
     Active Substance: RAMIPRIL
     Route: 048
  260. RAMIPRIL [Suspect]
     Active Substance: RAMIPRIL
     Route: 065
  261. RAMIPRIL [Suspect]
     Active Substance: RAMIPRIL
  262. RAMIPRIL [Suspect]
     Active Substance: RAMIPRIL
  263. RAMIPRIL [Suspect]
     Active Substance: RAMIPRIL
  264. RAMIPRIL [Suspect]
     Active Substance: RAMIPRIL
     Route: 048
  265. RAMIPRIL [Suspect]
     Active Substance: RAMIPRIL
     Route: 048
  266. RAMIPRIL [Suspect]
     Active Substance: RAMIPRIL
  267. RAMIPRIL [Suspect]
     Active Substance: RAMIPRIL
  268. RAMIPRIL [Suspect]
     Active Substance: RAMIPRIL
  269. RAMIPRIL [Suspect]
     Active Substance: RAMIPRIL
  270. RAMIPRIL [Suspect]
     Active Substance: RAMIPRIL
  271. RAMIPRIL [Suspect]
     Active Substance: RAMIPRIL
     Route: 048
  272. RAMIPRIL [Suspect]
     Active Substance: RAMIPRIL
     Route: 065
  273. RAMIPRIL [Suspect]
     Active Substance: RAMIPRIL
     Route: 065
  274. RAMIPRIL [Suspect]
     Active Substance: RAMIPRIL
     Route: 065
  275. RAMIPRIL [Suspect]
     Active Substance: RAMIPRIL
  276. RAMIPRIL [Suspect]
     Active Substance: RAMIPRIL
  277. RAMIPRIL [Suspect]
     Active Substance: RAMIPRIL
  278. RAMIPRIL [Suspect]
     Active Substance: RAMIPRIL
  279. RAMIPRIL [Suspect]
     Active Substance: RAMIPRIL
     Route: 048
  280. RAMIPRIL [Suspect]
     Active Substance: RAMIPRIL
     Route: 048
  281. RAMIPRIL [Suspect]
     Active Substance: RAMIPRIL
     Route: 048
  282. ROSUVASTATIN [Suspect]
     Active Substance: ROSUVASTATIN
     Indication: Asthma
     Dosage: 1 DF, Q12H
     Route: 048
  283. ROSUVASTATIN [Suspect]
     Active Substance: ROSUVASTATIN
     Route: 065
  284. ROSUVASTATIN [Suspect]
     Active Substance: ROSUVASTATIN
     Route: 065
  285. ROSUVASTATIN [Suspect]
     Active Substance: ROSUVASTATIN
  286. ROSUVASTATIN [Suspect]
     Active Substance: ROSUVASTATIN
  287. ROSUVASTATIN [Suspect]
     Active Substance: ROSUVASTATIN
  288. ROSUVASTATIN [Suspect]
     Active Substance: ROSUVASTATIN
  289. ROSUVASTATIN CALCIUM [Suspect]
     Active Substance: ROSUVASTATIN CALCIUM
     Indication: Asthma
     Route: 048
  290. ROSUVASTATIN CALCIUM [Suspect]
     Active Substance: ROSUVASTATIN CALCIUM
     Indication: Product used for unknown indication
     Route: 048
  291. ROSUVASTATIN CALCIUM [Suspect]
     Active Substance: ROSUVASTATIN CALCIUM
     Indication: Product used for unknown indication
     Route: 048
  292. ROSUVASTATIN CALCIUM [Suspect]
     Active Substance: ROSUVASTATIN CALCIUM
     Route: 048
  293. ROSUVASTATIN CALCIUM [Suspect]
     Active Substance: ROSUVASTATIN CALCIUM
     Route: 048
  294. ROSUVASTATIN CALCIUM [Suspect]
     Active Substance: ROSUVASTATIN CALCIUM
     Route: 048
  295. ROSUVASTATIN CALCIUM [Suspect]
     Active Substance: ROSUVASTATIN CALCIUM
     Route: 048
  296. ROSUVASTATIN CALCIUM [Suspect]
     Active Substance: ROSUVASTATIN CALCIUM
     Route: 065
  297. ROSUVASTATIN CALCIUM [Suspect]
     Active Substance: ROSUVASTATIN CALCIUM
     Route: 048
  298. ROSUVASTATIN CALCIUM [Suspect]
     Active Substance: ROSUVASTATIN CALCIUM
     Route: 065
  299. ROSUVASTATIN CALCIUM [Suspect]
     Active Substance: ROSUVASTATIN CALCIUM
     Route: 048
  300. ROSUVASTATIN CALCIUM [Suspect]
     Active Substance: ROSUVASTATIN CALCIUM
     Route: 048
  301. ROSUVASTATIN CALCIUM [Suspect]
     Active Substance: ROSUVASTATIN CALCIUM
     Route: 065
  302. ROSUVASTATIN CALCIUM [Suspect]
     Active Substance: ROSUVASTATIN CALCIUM
  303. ROSUVASTATIN CALCIUM [Suspect]
     Active Substance: ROSUVASTATIN CALCIUM
     Route: 048
  304. ROSUVASTATIN CALCIUM [Suspect]
     Active Substance: ROSUVASTATIN CALCIUM
     Route: 048
  305. ROSUVASTATIN CALCIUM [Suspect]
     Active Substance: ROSUVASTATIN CALCIUM
     Route: 048
  306. ROSUVASTATIN CALCIUM [Suspect]
     Active Substance: ROSUVASTATIN CALCIUM
     Route: 048
  307. ALBUTEROL SULFATE [Suspect]
     Active Substance: ALBUTEROL SULFATE
     Indication: Asthma
  308. ALBUTEROL SULFATE [Suspect]
     Active Substance: ALBUTEROL SULFATE
     Indication: Prophylaxis
  309. ALBUTEROL SULFATE [Suspect]
     Active Substance: ALBUTEROL SULFATE
  310. ALBUTEROL SULFATE [Suspect]
     Active Substance: ALBUTEROL SULFATE
  311. ALBUTEROL SULFATE [Suspect]
     Active Substance: ALBUTEROL SULFATE
  312. ALBUTEROL SULFATE [Suspect]
     Active Substance: ALBUTEROL SULFATE
     Route: 065
  313. ALBUTEROL SULFATE [Suspect]
     Active Substance: ALBUTEROL SULFATE
  314. ALBUTEROL SULFATE [Suspect]
     Active Substance: ALBUTEROL SULFATE
     Route: 065
  315. ALBUTEROL SULFATE [Suspect]
     Active Substance: ALBUTEROL SULFATE
  316. ALBUTEROL SULFATE [Suspect]
     Active Substance: ALBUTEROL SULFATE
  317. ALBUTEROL SULFATE [Suspect]
     Active Substance: ALBUTEROL SULFATE
  318. ALBUTEROL SULFATE [Suspect]
     Active Substance: ALBUTEROL SULFATE
  319. ALBUTEROL SULFATE [Suspect]
     Active Substance: ALBUTEROL SULFATE
     Route: 065
  320. ALBUTEROL SULFATE [Suspect]
     Active Substance: ALBUTEROL SULFATE
     Route: 065
  321. ALBUTEROL SULFATE [Suspect]
     Active Substance: ALBUTEROL SULFATE
  322. ALBUTEROL SULFATE [Suspect]
     Active Substance: ALBUTEROL SULFATE
  323. ALBUTEROL SULFATE [Suspect]
     Active Substance: ALBUTEROL SULFATE
  324. DOXYCYCLINE HYDROCHLORIDE [Suspect]
     Active Substance: DOXYCYCLINE HYDROCHLORIDE
  325. TIOTROPIUM BROMIDE [Suspect]
     Active Substance: TIOTROPIUM BROMIDE
     Indication: Asthma
     Dosage: 1 DF, QD
  326. TIOTROPIUM BROMIDE [Suspect]
     Active Substance: TIOTROPIUM BROMIDE
     Route: 065
  327. TIOTROPIUM BROMIDE [Suspect]
     Active Substance: TIOTROPIUM BROMIDE
     Route: 065
  328. TIOTROPIUM BROMIDE [Suspect]
     Active Substance: TIOTROPIUM BROMIDE
     Route: 065
  329. TIOTROPIUM BROMIDE [Suspect]
     Active Substance: TIOTROPIUM BROMIDE
  330. TIOTROPIUM BROMIDE [Suspect]
     Active Substance: TIOTROPIUM BROMIDE
  331. TIOTROPIUM BROMIDE [Suspect]
     Active Substance: TIOTROPIUM BROMIDE
  332. TIOTROPIUM BROMIDE [Suspect]
     Active Substance: TIOTROPIUM BROMIDE
  333. TIOTROPIUM BROMIDE [Suspect]
     Active Substance: TIOTROPIUM BROMIDE
  334. AMLODIPINE [Suspect]
     Active Substance: AMLODIPINE BESYLATE
     Route: 065
  335. AMLODIPINE MALEATE [Suspect]
     Active Substance: AMLODIPINE MALEATE
     Route: 065
  336. FINASTERIDE\TAMSULOSIN [Suspect]
     Active Substance: FINASTERIDE\TAMSULOSIN
  337. PREVNAR [Suspect]
     Active Substance: PNEUMOCOCCAL 7-VALENT CONJUGATE VACCINE (DIPHTHERIA CRM197 PROTEIN)
     Indication: Prophylaxis
  338. PREVNAR [Suspect]
     Active Substance: PNEUMOCOCCAL 7-VALENT CONJUGATE VACCINE (DIPHTHERIA CRM197 PROTEIN)
  339. PREVNAR [Suspect]
     Active Substance: PNEUMOCOCCAL 7-VALENT CONJUGATE VACCINE (DIPHTHERIA CRM197 PROTEIN)
     Route: 065
  340. PREVNAR [Suspect]
     Active Substance: PNEUMOCOCCAL 7-VALENT CONJUGATE VACCINE (DIPHTHERIA CRM197 PROTEIN)
     Route: 065
  341. PREVNAR [Suspect]
     Active Substance: PNEUMOCOCCAL 7-VALENT CONJUGATE VACCINE (DIPHTHERIA CRM197 PROTEIN)

REACTIONS (3)
  - Transient ischaemic attack [Unknown]
  - Malignant melanoma stage 0 [Unknown]
  - Congenital hiatus hernia [Unknown]
